FAERS Safety Report 8917600 (Version 5)
Quarter: 2013Q2

REPORT INFORMATION
  Report Type: Spontaneous
  Country: US (occurrence: US)
  Receive Date: 20121119
  Receipt Date: 20130507
  Transmission Date: 20140414
  Serious: No
  Sender: FDA-Public Use
  Company Number: US-009507513-1211USA006930

PATIENT
  Age: 20 Year
  Sex: Female
  Weight: 49.43 kg

DRUGS (1)
  1. IMPLANON [Suspect]
     Indication: CONTRACEPTION
     Dosage: UNK
     Route: 059
     Dates: start: 20120917, end: 201211

REACTIONS (5)
  - Malaise [Not Recovered/Not Resolved]
  - Parosmia [Not Recovered/Not Resolved]
  - Application site discomfort [Not Recovered/Not Resolved]
  - Medical device complication [Unknown]
  - Product quality issue [Unknown]
